FAERS Safety Report 13191616 (Version 3)
Quarter: 2017Q1

REPORT INFORMATION
  Report Type: Spontaneous
  Country: US (occurrence: US)
  Receive Date: 20170207
  Receipt Date: 20170307
  Transmission Date: 20170428
  Serious: Yes (Hospitalization, Other)
  Sender: FDA-Public Use
  Company Number: US-ALEXION-A201700948

PATIENT
  Sex: Female

DRUGS (2)
  1. STRENSIQ [Suspect]
     Active Substance: ASFOTASE ALFA
     Indication: HYPOPHOSPHATASIA
     Dosage: UNK
     Route: 058
  2. STRENSIQ [Suspect]
     Active Substance: ASFOTASE ALFA
     Dosage: UNK
     Route: 058

REACTIONS (12)
  - Tunnel vision [Unknown]
  - Heart rate increased [Unknown]
  - Loss of consciousness [Unknown]
  - Thrombosis [Not Recovered/Not Resolved]
  - Presyncope [Unknown]
  - Cerebrovascular accident [Not Recovered/Not Resolved]
  - Hypotension [Unknown]
  - Blood pressure decreased [Unknown]
  - Syncope [Unknown]
  - Hypoaesthesia [Unknown]
  - Abasia [Unknown]
  - Aphasia [Unknown]

NARRATIVE: CASE EVENT DATE: 20170207
